FAERS Safety Report 10420804 (Version 1)
Quarter: 2014Q3

REPORT INFORMATION
  Report Type: Spontaneous
  Country: US (occurrence: None)
  Receive Date: 20140829
  Receipt Date: 20140829
  Transmission Date: 20150326
  Serious: Yes (Death)
  Sender: FDA-Public Use
  Company Number: None

PATIENT
  Age: 74 Year
  Sex: Female

DRUGS (2)
  1. ORENCIA [Suspect]
     Active Substance: ABATACEPT
     Indication: RHEUMATOID ARTHRITIS
     Route: 058
     Dates: start: 20130702, end: 20140822
  2. ORENCIA [Suspect]
     Active Substance: ABATACEPT
     Indication: INFLAMMATION
     Route: 058
     Dates: start: 20130702, end: 20140822

REACTIONS (3)
  - Dyspnoea [None]
  - Disease progression [None]
  - Oesophageal disorder [None]

NARRATIVE: CASE EVENT DATE: 20140822
